FAERS Safety Report 17321224 (Version 1)
Quarter: 2020Q1

REPORT INFORMATION
  Report Type: Spontaneous
  Country: US (occurrence: US)
  Receive Date: 20200126
  Receipt Date: 20200126
  Transmission Date: 20200409
  Serious: No
  Sender: FDA-Public Use
  Company Number: US-B.I. PHARMACEUTICALS,INC./RIDGEFIELD-2020-US-003765

PATIENT
  Sex: Female

DRUGS (1)
  1. OFEV [Suspect]
     Active Substance: NINTEDANIB
     Indication: IDIOPATHIC PULMONARY FIBROSIS
     Dosage: 100MH BID
     Route: 065
     Dates: start: 20191119

REACTIONS (5)
  - Alopecia [Unknown]
  - Vomiting [Unknown]
  - Epistaxis [Unknown]
  - Decreased appetite [Unknown]
  - Nasopharyngitis [Unknown]
